FAERS Safety Report 17196593 (Version 1)
Quarter: 2019Q4

REPORT INFORMATION
  Report Type: Spontaneous
  Country: DE (occurrence: DE)
  Receive Date: 20191224
  Receipt Date: 20191224
  Transmission Date: 20200122
  Serious: Yes (Hospitalization)
  Sender: FDA-Public Use
  Company Number: DE-PFIZER INC-2019549438

PATIENT
  Age: 87 Year
  Sex: Female

DRUGS (2)
  1. AMLODIPINE BESILATE [Suspect]
     Active Substance: AMLODIPINE BESYLATE
     Dosage: 5 MG, 1X/DAY
  2. CANDESARTAN. [Suspect]
     Active Substance: CANDESARTAN
     Dosage: 8 MG, 2X/DAY (8 MG, 1-0-1-0)

REACTIONS (3)
  - General physical health deterioration [Unknown]
  - Gamma-glutamyltransferase increased [Unknown]
  - Dizziness [Unknown]

NARRATIVE: CASE EVENT DATE: 20190719
